FAERS Safety Report 5948814-0 (Version None)
Quarter: 2008Q4

REPORT INFORMATION
  Report Type: 
  Country: None (occurrence: None)
  Receive Date: 20081021
  Receipt Date: 20071026
  Transmission Date: 20090506
  Serious: Yes (Other)
  Sender: FDA-Public Use
  Company Number: HQWYE441125JUL05

PATIENT
  Age: 56 Year
  Sex: Female

DRUGS (4)
  1. PREMARIN [Suspect]
     Indication: INSOMNIA
  2. PREMARIN [Suspect]
     Indication: IRRITABILITY
  3. PROVERA [Suspect]
     Indication: INSOMNIA
  4. PROVERA [Suspect]
     Indication: IRRITABILITY

REACTIONS (1)
  - BREAST CANCER [None]
